FAERS Safety Report 24328360 (Version 2)
Quarter: 2024Q4

REPORT INFORMATION
  Report Type: Report from Study
  Country: JP (occurrence: JP)
  Receive Date: 20240917
  Receipt Date: 20241211
  Transmission Date: 20250114
  Serious: Yes (Death)
  Sender: AKEBIA THERAPEUTICS
  Company Number: JP-MTPC-MTPC2024-0019051

PATIENT
  Age: 92 Year
  Sex: Male
  Weight: 58 kg

DRUGS (4)
  1. VADADUSTAT [Suspect]
     Active Substance: VADADUSTAT
     Indication: Nephrogenic anaemia
     Dosage: 300 MILLIGRAM, QD
     Route: 048
     Dates: start: 20220406, end: 20220614
  2. VADADUSTAT [Suspect]
     Active Substance: VADADUSTAT
     Dosage: 150 MILLIGRAM, QD
     Route: 048
     Dates: start: 20220615, end: 20231122
  3. IRBESARTAN\TRICHLORMETHIAZIDE [Concomitant]
     Active Substance: IRBESARTAN\TRICHLORMETHIAZIDE
     Indication: Product used for unknown indication
     Dosage: 1 DOSAGE FORM, QD
     Route: 048
     Dates: end: 20231104
  4. VILDAGLIPTIN [Concomitant]
     Active Substance: VILDAGLIPTIN
     Indication: Illness
     Dosage: 100 MILLIGRAM, QD
     Route: 048

REACTIONS (1)
  - Enteritis infectious [Fatal]

NARRATIVE: CASE EVENT DATE: 20231211
